FAERS Safety Report 9250572 (Version 1)
Quarter: 2013Q1

REPORT INFORMATION
  Report Type: Spontaneous
  Country: US (occurrence: None)
  Receive Date: 20130305
  Receipt Date: 20130305
  Transmission Date: 20140127
  Serious: Yes (Other)
  Sender: FDA-Public Use
  Company Number: 163-21880-12082349 (0)

PATIENT
  Age: 77 Year
  Sex: Male
  Weight: 102 kg

DRUGS (2)
  1. REVLIMID (LENALIDOMIDE) [Suspect]
     Indication: PLASMA CELL MYELOMA
     Dosage: 15 MG.,  21 IN 28 D, PO
     Route: 048
     Dates: start: 20120730, end: 201208
  2. VALCADE (UNKNOWN) [Concomitant]

REACTIONS (2)
  - Muscular weakness [None]
  - Dyspnoea [None]
